FAERS Safety Report 13097790 (Version 2)
Quarter: 2017Q1

REPORT INFORMATION
  Report Type: Spontaneous
  Country: GB (occurrence: GB)
  Receive Date: 20170109
  Receipt Date: 20170210
  Transmission Date: 20170428
  Serious: Yes (Life-Threatening, Other)
  Sender: FDA-Public Use
  Company Number: GB-PFIZER INC-2017006248

PATIENT
  Age: 24 Year
  Sex: Female

DRUGS (4)
  1. VENLAFAXINE HCL [Suspect]
     Active Substance: VENLAFAXINE HYDROCHLORIDE
     Dosage: 8.85 G, SINGLE 8.85 G (118 PIECES OF 75-MG TABLETS)
     Route: 048
  2. CODEINE [Concomitant]
     Active Substance: CODEINE
     Dosage: UNK
  3. PARACETAMOL [Concomitant]
     Active Substance: ACETAMINOPHEN
     Dosage: UNK
  4. CITALOPRAM [Suspect]
     Active Substance: CITALOPRAM HYDROBROMIDE
     Dosage: UNK

REACTIONS (4)
  - Blood creatine phosphokinase increased [Unknown]
  - Generalised tonic-clonic seizure [Unknown]
  - Overdose [Unknown]
  - Cardiotoxicity [Unknown]
